FAERS Safety Report 6054191-X (Version None)
Quarter: 2009Q1

REPORT INFORMATION
  Report Type: 
  Country: None (occurrence: None)
  Receive Date: 20090127
  Receipt Date: 20090120
  Transmission Date: 20090719
  Serious: Yes (Hospitalization)
  Sender: FDA-Public Use
  Company Number: US-ELI_LILLY_AND_COMPANY-US200812004618

PATIENT
  Sex: Female
  Weight: 104.31 kg

DRUGS (12)
  1. BYETTA [Suspect]
     Indication: TYPE 2 DIABETES MELLITUS
     Dosage: 10 UG, 2/D
     Route: 058
     Dates: start: 20070501, end: 20070601
  2. BYETTA [Suspect]
     Dosage: 10 UG, 2/D
     Route: 058
     Dates: start: 20070601
  3. NOVOLOG [Concomitant]
     Indication: TYPE 2 DIABETES MELLITUS
     Dosage: UNK, AS NEEDED
     Route: 058
  4. LANTUS [Concomitant]
     Dosage: 32 U, EACH EVENING
     Route: 058
  5. BENICAR HCT [Concomitant]
     Indication: HYPERTENSION
     Dosage: UNK, DAILY (1/D)
     Route: 048
  6. LORAZEPAM [Concomitant]
     Indication: DEPRESSION
     Dosage: 2 MG, 3/D
     Route: 048
  7. CYMBALTA [Concomitant]
     Indication: DEPRESSION
     Dosage: 60 MG, DAILY (1/D)
     Route: 048
  8. SYNTHROID [Concomitant]
     Indication: HYPOTHYROIDISM
     Dosage: 112 UG, DAILY (1/D)
     Route: 048
  9. OMEPRAZOLE [Concomitant]
     Indication: HIATUS HERNIA
     Dosage: 20 MG, DAILY (1/D)
     Route: 048
  10. DIAZEPAM [Concomitant]
     Indication: INSOMNIA
     Dosage: 30 MG, AS NEEDED
     Route: 048
  11. SEROQUEL [Concomitant]
     Indication: INSOMNIA
     Dosage: 100 MG, EACH EVENING
     Route: 048
  12. INFLUENZA VACCINE [Concomitant]
     Dosage: UNK, UNKNOWN
     Dates: start: 20081101, end: 20081101

REACTIONS (5)
  - BLOOD GLUCOSE FLUCTUATION [None]
  - FOOT OPERATION [None]
  - PROCEDURAL NAUSEA [None]
  - PROCEDURAL PAIN [None]
  - PROCEDURAL VOMITING [None]
